FAERS Safety Report 19925696 (Version 1)
Quarter: 2021Q4

REPORT INFORMATION
  Report Type: Report from Study
  Country: FR (occurrence: FR)
  Receive Date: 20211006
  Receipt Date: 20211006
  Transmission Date: 20220303
  Serious: Yes (Other)
  Sender: FDA-Public Use
  Company Number: 2021A749769

PATIENT
  Age: 68 Year
  Sex: Female

DRUGS (1)
  1. OSIMERTINIB [Suspect]
     Active Substance: OSIMERTINIB
     Indication: Non-small cell lung cancer
     Route: 048

REACTIONS (5)
  - Drug resistance [Unknown]
  - Malignant transformation [Unknown]
  - Small cell lung cancer [Unknown]
  - Malignant neoplasm progression [Unknown]
  - Metastases to liver [Unknown]
